FAERS Safety Report 7040089-7 (Version None)
Quarter: 2010Q4

REPORT INFORMATION
  Report Type: 
  Country: None (occurrence: None)
  Receive Date: 20101012
  Receipt Date: 20100929
  Transmission Date: 20110411
  Serious: Yes (Other)
  Sender: FDA-Public Use
  Company Number: PHHY2010DE56311

PATIENT
  Age: 75 Year
  Sex: Female
  Weight: 70 kg

DRUGS (1)
  1. RASILEZ [Suspect]
     Dosage: 300 MG, QD (1-0-0)
     Route: 048
     Dates: start: 20080101

REACTIONS (4)
  - ANGINA PECTORIS [None]
  - CONFUSIONAL STATE [None]
  - IRRITABILITY [None]
  - NAUSEA [None]
